FAERS Safety Report 17830626 (Version 7)
Quarter: 2023Q4

REPORT INFORMATION
  Report Type: Spontaneous
  Country: US (occurrence: US)
  Receive Date: 20200527
  Receipt Date: 20231019
  Transmission Date: 20240110
  Serious: Yes (Other)
  Sender: FDA-Public Use
  Company Number: US-PFIZER INC-2020207851

PATIENT
  Age: 40 Year
  Sex: Female
  Weight: 63.5 kg

DRUGS (4)
  1. NARDIL [Suspect]
     Active Substance: PHENELZINE SULFATE
     Indication: Autonomic dysreflexia
     Dosage: 15 MG, 3X/DAY (15 MG TABLET, ONE TABLET, THREE TIMES DAILY)
     Route: 048
     Dates: start: 1993
  2. NARDIL [Suspect]
     Active Substance: PHENELZINE SULFATE
     Indication: Autonomic nervous system imbalance
  3. NARDIL [Suspect]
     Active Substance: PHENELZINE SULFATE
     Indication: Nervous system disorder
  4. METOPROLOL [Concomitant]
     Active Substance: METOPROLOL
     Indication: Tachycardia
     Dosage: 25 MG, 1X/DAY
     Route: 048

REACTIONS (5)
  - Drug dependence [Unknown]
  - Drug ineffective for unapproved indication [Unknown]
  - Off label use [Unknown]
  - Blood catecholamines increased [Unknown]
  - Weight increased [Unknown]

NARRATIVE: CASE EVENT DATE: 19930101
